FAERS Safety Report 8055690-1 (Version None)
Quarter: 2012Q1

REPORT INFORMATION
  Report Type: 
  Country: None (occurrence: None)
  Receive Date: 20120119
  Receipt Date: 20120109
  Transmission Date: 20120608
  Serious: Yes (Hospitalization)
  Sender: FDA-Public Use
  Company Number: DE-ELI_LILLY_AND_COMPANY-DE201201002402

PATIENT
  Age: 73 Year
  Sex: Female

DRUGS (5)
  1. CALCIUM [Concomitant]
  2. VITAMIN D [Concomitant]
  3. GREEN LIPPED MUSSEL [Concomitant]
  4. FORTEO [Suspect]
     Indication: OSTEOPOROSIS
     Dosage: UNK, QD
     Route: 058
     Dates: start: 20110127, end: 20111201
  5. CARDIAC THERAPY [Concomitant]

REACTIONS (3)
  - RESPIRATORY DISORDER [None]
  - WEIGHT DECREASED [None]
  - FLUID RETENTION [None]
